FAERS Safety Report 9899268 (Version 1)
Quarter: 2014Q1

REPORT INFORMATION
  Report Type: Spontaneous
  Country: US (occurrence: US)
  Receive Date: 20140214
  Receipt Date: 20140214
  Transmission Date: 20141002
  Serious: No
  Sender: FDA-Public Use
  Company Number: US-TEVA-433344USA

PATIENT
  Sex: 0

DRUGS (1)
  1. METHOTREXATE [Suspect]
     Indication: RHEUMATOID ARTHRITIS
     Dosage: 0.8 MG OR 0.8 ML WEEKLY SINGLE DOSE VIAL; 25 MG/ML
     Dates: start: 20130831

REACTIONS (3)
  - Injection site pain [Unknown]
  - Injection site warmth [Unknown]
  - Arthralgia [Unknown]
